FAERS Safety Report 12851372 (Version 2)
Quarter: 2017Q1

REPORT INFORMATION
  Report Type: Spontaneous
  Country: US (occurrence: US)
  Receive Date: 20161017
  Receipt Date: 20170109
  Transmission Date: 20170428
  Serious: No
  Sender: FDA-Public Use
  Company Number: US-JNJFOC-20150703127

PATIENT
  Age: 61 Year
  Sex: Male

DRUGS (19)
  1. ACETAMINOPHEN. [Concomitant]
     Active Substance: ACETAMINOPHEN
  2. ACYCLOVIR. [Concomitant]
     Active Substance: ACYCLOVIR
  3. DIPHENHYDRAMINE. [Concomitant]
     Active Substance: DIPHENHYDRAMINE
  4. GAMMAGARD [Concomitant]
     Active Substance: HUMAN IMMUNOGLOBULIN G
  5. ZYPREXA [Concomitant]
     Active Substance: OLANZAPINE
  6. IMBRUVICA [Suspect]
     Active Substance: IBRUTINIB
     Indication: CHRONIC LYMPHOCYTIC LEUKAEMIA
     Route: 048
     Dates: start: 2015, end: 2015
  7. LAMICTAL [Concomitant]
     Active Substance: LAMOTRIGINE
  8. PROVIGIL [Concomitant]
     Active Substance: MODAFINIL
  9. TRICOR [Concomitant]
     Active Substance: FENOFIBRATE
  10. PREDNISONE. [Concomitant]
     Active Substance: PREDNISONE
  11. TARKA [Concomitant]
     Active Substance: TRANDOLAPRIL\VERAPAMIL HYDROCHLORIDE
  12. IMBRUVICA [Suspect]
     Active Substance: IBRUTINIB
     Indication: CHRONIC LYMPHOCYTIC LEUKAEMIA
     Route: 048
     Dates: start: 20150107, end: 2015
  13. CYANOCOBALAMIN. [Concomitant]
     Active Substance: CYANOCOBALAMIN
  14. NORTRIPTYLINE [Concomitant]
     Active Substance: NORTRIPTYLINE
  15. IMBRUVICA [Suspect]
     Active Substance: IBRUTINIB
     Indication: CHRONIC LYMPHOCYTIC LEUKAEMIA
     Route: 048
     Dates: start: 2015
  16. IMBRUVICA [Suspect]
     Active Substance: IBRUTINIB
     Indication: CHRONIC LYMPHOCYTIC LEUKAEMIA
     Route: 048
     Dates: start: 2015, end: 2015
  17. METFORMIN [Concomitant]
     Active Substance: METFORMIN HYDROCHLORIDE
  18. ONDANSETRON [Concomitant]
     Active Substance: ONDANSETRON
  19. RESTORIL [Concomitant]
     Active Substance: TEMAZEPAM

REACTIONS (9)
  - Off label use [Unknown]
  - Insomnia [Unknown]
  - Fatigue [Not Recovered/Not Resolved]
  - Pseudomonas infection [Recovering/Resolving]
  - Epistaxis [Not Recovered/Not Resolved]
  - Incorrect dosage administered [Unknown]
  - Pyrexia [Unknown]
  - Toothache [Unknown]
  - Pain [Unknown]

NARRATIVE: CASE EVENT DATE: 2015
